FAERS Safety Report 4263613-6 (Version None)
Quarter: 2004Q1

REPORT INFORMATION
  Report Type: 
  Country: None (occurrence: None)
  Receive Date: 20040102
  Receipt Date: 20031112
  Transmission Date: 20041129
  Serious: Yes (Death)
  Sender: FDA-Public Use
  Company Number: 2003IC000619

PATIENT
  Age: 56 Year
  Sex: Male

DRUGS (3)
  1. FLUOROURACIL [Suspect]
     Indication: OESOPHAGEAL CARCINOMA
     Dosage: 1.1 GM; DAILY; INTRAVENOUS
     Route: 042
     Dates: start: 20030804, end: 20031017
  2. DOXORUBICIN HCL [Suspect]
     Indication: OESOPHAGEAL CARCINOMA
     Dosage: 45 MG; DAILY; INTRAVENOUS
     Route: 042
     Dates: start: 20030804, end: 20031016
  3. AQUPLA (NEDAPLATIN) [Suspect]
     Indication: OESOPHAGEAL CARCINOMA
     Dosage: 95 MG; DAILY; INTRAVENOUS
     Route: 042
     Dates: start: 20030804, end: 20031016

REACTIONS (15)
  - BLOOD CHLORIDE INCREASED [None]
  - BLOOD GLUCOSE INCREASED [None]
  - BLOOD POTASSIUM DECREASED [None]
  - BLOOD SODIUM INCREASED [None]
  - DEHYDRATION [None]
  - DEPRESSED LEVEL OF CONSCIOUSNESS [None]
  - DIARRHOEA [None]
  - ELECTROLYTE IMBALANCE [None]
  - GLUCOSE TOLERANCE IMPAIRED [None]
  - MALAISE [None]
  - MALNUTRITION [None]
  - RESPIRATORY FAILURE [None]
  - SHOCK [None]
  - SOMNOLENCE [None]
  - VEIN DISORDER [None]
